FAERS Safety Report 4775657-6 (Version None)
Quarter: 2005Q3

REPORT INFORMATION
  Report Type: 
  Country: None (occurrence: None)
  Receive Date: 20050921
  Receipt Date: 20050921
  Transmission Date: 20060218
  Serious: Yes (Other)
  Sender: FDA-Public Use
  Company Number: None

PATIENT
  Age: 55 Year
  Sex: Male
  Weight: 68.0396 kg

DRUGS (2)
  1. WELLBUTRIN XL [Suspect]
     Indication: ATTENTION DEFICIT/HYPERACTIVITY DISORDER
     Dosage: PO
     Route: 048
     Dates: start: 20050910, end: 20050919
  2. AMBIEN [Concomitant]

REACTIONS (6)
  - CONFUSIONAL STATE [None]
  - CONVULSION [None]
  - DIPLOPIA [None]
  - SLEEP DISORDER [None]
  - SPEECH DISORDER [None]
  - STRESS [None]
